FAERS Safety Report 8009980-9 (Version None)
Quarter: 2011Q4

REPORT INFORMATION
  Report Type: 
  Country: None (occurrence: None)
  Receive Date: 20111228
  Receipt Date: 20111220
  Transmission Date: 20120403
  Serious: Yes (Other)
  Sender: FDA-Public Use
  Company Number: US-JNJFOC-20111210820

PATIENT
  Sex: Female

DRUGS (6)
  1. PEGFILGRASTIM [Suspect]
     Indication: BREAST CANCER
     Route: 058
  2. DOXORUBICIN HCL [Suspect]
     Indication: BREAST CANCER
     Dosage: EVERY 2 WEEKS
     Route: 042
  3. PACLITAXEL [Suspect]
     Indication: BREAST CANCER
     Route: 042
  4. CYCLOPHOSPHAMIDE [Suspect]
     Indication: BREAST CANCER
     Dosage: EVERY 2 WEEKS
     Route: 042
  5. BEVACIZUMAB [Suspect]
     Indication: BREAST CANCER
     Dosage: CYCLES 1-4
     Route: 042
  6. BEVACIZUMAB [Suspect]
     Dosage: (CYCLES 9-18)
     Route: 042

REACTIONS (1)
  - MYALGIA [None]
